FAERS Safety Report 9291664 (Version 1)
Quarter: 2013Q2

REPORT INFORMATION
  Report Type: Spontaneous
  Country: US (occurrence: US)
  Receive Date: 20130515
  Receipt Date: 20130515
  Transmission Date: 20140414
  Serious: Yes (Other)
  Sender: FDA-Public Use
  Company Number: US-ALEXION PHARMACEUTICALS INC.-A201301038

PATIENT
  Sex: Female

DRUGS (3)
  1. SOLIRIS 300MG [Suspect]
     Indication: HAEMOLYTIC URAEMIC SYNDROME
     Dosage: UNK
     Route: 042
     Dates: start: 20120304
  2. SOLIRIS 300MG [Suspect]
     Dosage: 1200 MG, QW
     Route: 042
     Dates: start: 20130401
  3. DILAUDID [Suspect]
     Indication: ABDOMINAL PAIN
     Route: 042

REACTIONS (2)
  - Hallucination [Unknown]
  - Abdominal pain [Unknown]
